APPROVED DRUG PRODUCT: COBENFY
Active Ingredient: TROSPIUM CHLORIDE; XANOMELINE TARTRATE
Strength: 20MG;EQ 100MG BASE
Dosage Form/Route: CAPSULE;ORAL
Application: N216158 | Product #002
Applicant: BRISTOL-MYERS SQUIBB CO
Approved: Sep 26, 2024 | RLD: Yes | RS: No | Type: RX

PATENTS:
Patent 11890378 | Expires: Sep 27, 2039
Patent 11471413 | Expires: Sep 27, 2039
Patent 11452692 | Expires: Sep 27, 2039
Patent 10933020 | Expires: Sep 27, 2039
Patent 10695339 | Expires: Jul 21, 2030
Patent 10369144 | Expires: Jul 21, 2030
Patent 10369143 | Expires: Jul 21, 2030
Patent 10265311 | Expires: Jul 21, 2030
Patent 10925832 | Expires: Sep 27, 2039
Patent 10238643 | Expires: Jul 21, 2030

EXCLUSIVITY:
Code: NCE | Date: Sep 26, 2029